FAERS Safety Report 9828544 (Version 1)
Quarter: 2014Q1

REPORT INFORMATION
  Report Type: Spontaneous
  Country: US (occurrence: US)
  Receive Date: 20140117
  Receipt Date: 20140117
  Transmission Date: 20141002
  Serious: No
  Sender: FDA-Public Use
  Company Number: US-TEVA-456815USA

PATIENT
  Age: 21 Year
  Sex: Female
  Weight: 59.93 kg

DRUGS (2)
  1. PARAGARD 380A [Suspect]
     Indication: CONTRACEPTION
     Route: 015
     Dates: start: 20131113, end: 20140115
  2. LAVENDER [Concomitant]
     Indication: PRODUCT USED FOR UNKNOWN INDICATION

REACTIONS (6)
  - Metrorrhagia [Not Recovered/Not Resolved]
  - Coital bleeding [Not Recovered/Not Resolved]
  - Menorrhagia [Recovered/Resolved]
  - Pelvic pain [Recovered/Resolved]
  - Device expulsion [Recovered/Resolved]
  - Bacterial vaginosis [Not Recovered/Not Resolved]
